FAERS Safety Report 23305739 (Version 5)
Quarter: 2024Q3

REPORT INFORMATION
  Report Type: Spontaneous
  Country: CA (occurrence: CA)
  Receive Date: 20231218
  Receipt Date: 20240920
  Transmission Date: 20241016
  Serious: Yes (Hospitalization, Disabling, Other)
  Sender: CELLTRION
  Company Number: CA-CELLTRION INC.-2023CA023777

PATIENT

DRUGS (7)
  1. YUFLYMA [Suspect]
     Active Substance: ADALIMUMAB-AATY
     Indication: Rheumatoid arthritis
     Dosage: YUFLYMA 40 MG SC Q2WEEKS
     Route: 058
     Dates: start: 20231103
  2. YUFLYMA [Suspect]
     Active Substance: ADALIMUMAB-AATY
     Dosage: YUFLYMA 40 MG SC Q2WEEKS
     Route: 058
     Dates: start: 20231207
  3. LEFLUNOMIDE [Concomitant]
     Active Substance: LEFLUNOMIDE
     Dosage: LEFLUNOMIDE DAILY
  4. ALEVE [Concomitant]
     Active Substance: NAPROXEN SODIUM
     Dosage: PRN
  5. TYLENOL [Concomitant]
     Active Substance: ACETAMINOPHEN
  6. ADVIL [Concomitant]
     Active Substance: IBUPROFEN\IBUPROFEN SODIUM
  7. TYLENOL ARTHRITIS PAIN [Concomitant]
     Active Substance: ACETAMINOPHEN

REACTIONS (13)
  - Oropharyngeal pain [Recovered/Resolved]
  - Pain in jaw [Recovered/Resolved]
  - Pain in extremity [Recovering/Resolving]
  - Headache [Recovering/Resolving]
  - Syncope [Recovered/Resolved]
  - Bacterial infection [Recovering/Resolving]
  - Arthritis infective [Recovering/Resolving]
  - Fibromyalgia [Unknown]
  - Malaise [Recovering/Resolving]
  - Arthralgia [Recovering/Resolving]
  - Pruritus [Not Recovered/Not Resolved]
  - Intentional dose omission [Unknown]
  - Therapy cessation [Unknown]

NARRATIVE: CASE EVENT DATE: 20231116
